FAERS Safety Report 5205843-2 (Version None)
Quarter: 2007Q1

REPORT INFORMATION
  Report Type: 
  Country: None (occurrence: None)
  Receive Date: 20070111
  Receipt Date: 20070104
  Transmission Date: 20070707
  Serious: Yes (Hospitalization)
  Sender: FDA-Public Use
  Company Number: US-BRISTOL-MYERS SQUIBB COMPANY-13632781

PATIENT
  Age: 71 Year
  Sex: Male

DRUGS (16)
  1. BLINDED: APIXABAN [Suspect]
     Indication: THROMBOSIS PROPHYLAXIS
     Dates: start: 20061106, end: 20061229
  2. BLINDED: PLACEBO [Suspect]
     Indication: THROMBOSIS PROPHYLAXIS
     Dates: start: 20061106, end: 20061229
  3. OMEPRAZOLE [Concomitant]
  4. METOPROLOL SUCCINATE [Concomitant]
  5. ASPIRIN [Concomitant]
  6. HYDROCHLOROTHIAZIDE [Concomitant]
  7. TRAVATAN [Concomitant]
     Route: 031
  8. AZOPT [Concomitant]
     Route: 031
  9. DECADRON [Concomitant]
  10. KYTRIL [Concomitant]
  11. ARANESP [Concomitant]
  12. CELEXA [Concomitant]
     Dates: start: 20061127, end: 20061130
  13. LEVAQUIN [Concomitant]
     Dates: start: 20061207
  14. BECONASE [Concomitant]
  15. DOCETAXEL [Concomitant]
     Indication: PROSTATE CANCER
     Dates: start: 20061106
  16. PREDNISONE TAB [Concomitant]
     Indication: PROSTATE CANCER
     Dates: start: 20061106

REACTIONS (5)
  - GASTROENTERITIS RADIATION [None]
  - HAEMORRHOIDS [None]
  - LARGE INTESTINAL ULCER [None]
  - LOWER GASTROINTESTINAL HAEMORRHAGE [None]
  - RECTAL HAEMORRHAGE [None]
